FAERS Safety Report 5254094-4 (Version None)
Quarter: 2007Q1

REPORT INFORMATION
  Report Type: 
  Country: None (occurrence: None)
  Receive Date: 20070302
  Receipt Date: 20070226
  Transmission Date: 20070707
  Serious: Yes (Other)
  Sender: FDA-Public Use
  Company Number: US-BAYER-200710404BCC

PATIENT
  Age: 30 Year
  Sex: Male
  Weight: 86 kg

DRUGS (1)
  1. BAYER MUSCLE + JOINT CREAM [Suspect]
     Indication: ACCIDENTAL EXPOSURE
     Route: 047
     Dates: start: 20070203

REACTIONS (5)
  - EYE IRRITATION [None]
  - EYE OEDEMA [None]
  - EYE PAIN [None]
  - LACRIMATION INCREASED [None]
  - VISION BLURRED [None]
